FAERS Safety Report 8540999-5 (Version None)
Quarter: 2012Q3

REPORT INFORMATION
  Report Type: 
  Country: None (occurrence: None)
  Receive Date: 20120726
  Receipt Date: 20110808
  Transmission Date: 20120928
  Serious: No
  Sender: FDA-Public Use
  Company Number: US-ASTRAZENECA-2011SE47319

PATIENT
  Age: 59 Year
  Sex: Male

DRUGS (1)
  1. SEROQUEL [Suspect]
     Indication: AFFECTIVE DISORDER
     Route: 048
     Dates: start: 20110101, end: 20110807

REACTIONS (7)
  - INSOMNIA [None]
  - PRURITUS [None]
  - ANXIETY [None]
  - OFF LABEL USE [None]
  - MUSCLE TWITCHING [None]
  - ARTHRALGIA [None]
  - ABDOMINAL PAIN UPPER [None]
